FAERS Safety Report 17287259 (Version 2)
Quarter: 2020Q1

REPORT INFORMATION
  Report Type: Spontaneous
  Country: FR (occurrence: FR)
  Receive Date: 20200120
  Receipt Date: 20200124
  Transmission Date: 20200409
  Serious: Yes (Other)
  Sender: FDA-Public Use
  Company Number: FR-ROCHE-2527033

PATIENT
  Sex: Male

DRUGS (5)
  1. VALIUM [Suspect]
     Active Substance: DIAZEPAM
     Indication: ANXIETY
     Dosage: IN THE MORNING AND IN THE EVENING
     Route: 048
     Dates: start: 201909
  2. VALIUM [Suspect]
     Active Substance: DIAZEPAM
     Dosage: IN THE MORNING
     Route: 048
     Dates: start: 202001
  3. LOXAPAC [LOXAPINE] [Concomitant]
     Active Substance: LOXAPINE
  4. TEGRETOL [Concomitant]
     Active Substance: CARBAMAZEPINE
     Indication: BEHAVIOUR DISORDER
     Dosage: IN THE MORNING AND IN THE EVENING
     Route: 065
  5. ZYPREXA [Concomitant]
     Active Substance: OLANZAPINE
     Dosage: IN THE EVENING
     Route: 065

REACTIONS (2)
  - Intentional self-injury [Unknown]
  - Agitation [Recovering/Resolving]
